FAERS Safety Report 8160250-8 (Version None)
Quarter: 2012Q1

REPORT INFORMATION
  Report Type: 
  Country: None (occurrence: None)
  Receive Date: 20120103
  Receipt Date: 20110929
  Transmission Date: 20120608
  Serious: No
  Sender: FDA-Public Use
  Company Number: AE-2011-001571

PATIENT
  Age: 63 Year
  Sex: Female
  Weight: 71.6683 kg

DRUGS (14)
  1. ATACAND [Concomitant]
  2. CALCIUM WITH VITAMIN D (CALCIUM D SAUTER /01272001/) [Concomitant]
  3. INCIVEK [Suspect]
     Dosage: 2250 MG (750 MG, 1 IN 8 HR), ORAL
     Route: 048
     Dates: start: 20110831
  4. ETODOLAC [Concomitant]
  5. TOPROL-XL [Concomitant]
  6. ZOMIG [Concomitant]
  7. EFFEXOR [Concomitant]
  8. GABAPENTIN [Concomitant]
  9. TYLENOL WITH COEDINE (PANADEINE CO) [Concomitant]
  10. PEGASYS [Concomitant]
  11. RISEDRONATE SODIUM [Concomitant]
  12. RIBASPHERE [Concomitant]
  13. CRILL OIL (MULTIVITAMIN AND MINERAL SUPPLEMENT) [Concomitant]
  14. MILK THISTLE (MULTIVITAMIN AND MINERAL SUPPLEMENT) [Concomitant]

REACTIONS (3)
  - INAPPROPRIATE SCHEDULE OF DRUG ADMINISTRATION [None]
  - MIGRAINE [None]
  - FATIGUE [None]
